FAERS Safety Report 16160643 (Version 1)
Quarter: 2019Q2

REPORT INFORMATION
  Report Type: Spontaneous
  Country: FR (occurrence: FR)
  Receive Date: 20190405
  Receipt Date: 20190405
  Transmission Date: 20190711
  Serious: Yes (Hospitalization)
  Sender: FDA-Public Use
  Company Number: FR-SUN PHARMACEUTICAL INDUSTRIES LTD-2019RR-204146

PATIENT
  Age: 42 Year
  Sex: Female
  Weight: 56 kg

DRUGS (2)
  1. AMOXICILLINE PANPHARMA 1 G, POUDRE POUR SOLUTION INJECTABLE (IV) [Suspect]
     Active Substance: AMOXICILLIN SODIUM
     Indication: LUNG DISORDER
     Dosage: 3 GRAM, DAILY
     Route: 048
     Dates: start: 20181221, end: 20181225
  2. IBUPROFEN. [Suspect]
     Active Substance: IBUPROFEN
     Indication: LUNG DISORDER
     Dosage: 800 MILLIGRAM, DAILY
     Route: 048
     Dates: start: 20181221, end: 20181223

REACTIONS (1)
  - Meningitis aseptic [Recovered/Resolved]

NARRATIVE: CASE EVENT DATE: 20181225
